FAERS Safety Report 25953918 (Version 1)
Quarter: 2025Q4

REPORT INFORMATION
  Report Type: Spontaneous
  Country: EU (occurrence: EU)
  Receive Date: 20251023
  Receipt Date: 20251023
  Transmission Date: 20260117
  Serious: Yes (Death, Other)
  Sender: MYLAN
  Company Number: EU-PFIZER INC-202500200007

PATIENT
  Age: 77 Year
  Sex: Male

DRUGS (4)
  1. DOCETAXEL [Suspect]
     Active Substance: DOCETAXEL
     Indication: Chemotherapy
     Dosage: 50 MILLIGRAM/SQ. METER (FOUR PREOPERATIVE AND FOUR POSTOPERATIVE 2-WEEK CYCLES)
  2. OXALIPLATIN [Suspect]
     Active Substance: OXALIPLATIN
     Indication: Chemotherapy
     Dosage: 85 MILLIGRAM/SQ. METER
  3. FLUOROURACIL [Suspect]
     Active Substance: FLUOROURACIL
     Indication: Chemotherapy
     Dosage: 2600 MILLIGRAM/SQ. METER (AS 24 H INFUSION ON DAY 1)
  4. LEUCOVORIN [Suspect]
     Active Substance: LEUCOVORIN\LEUCOVORIN CALCIUM
     Indication: Chemotherapy
     Dosage: 200 MILLIGRAM/SQ. METER

REACTIONS (3)
  - Anastomotic leak [Fatal]
  - Respiratory failure [Fatal]
  - Pneumonia [Fatal]
